FAERS Safety Report 9473932 (Version 2)
Quarter: 2013Q3

REPORT INFORMATION
  Report Type: Spontaneous
  Country: US (occurrence: US)
  Receive Date: 20130823
  Receipt Date: 20130823
  Transmission Date: 20140515
  Serious: Yes (Other)
  Sender: FDA-Public Use
  Company Number: US-BRISTOL-MYERS SQUIBB COMPANY-17155557

PATIENT
  Age: 55 Year
  Sex: Male
  Weight: 151.92 kg

DRUGS (19)
  1. SPRYCEL [Suspect]
     Indication: CHRONIC MYELOID LEUKAEMIA
     Dosage: INTRUPTED ON: 30OCT12, RESTARTED ON 03NOV12
     Route: 048
     Dates: start: 20121027
  2. ALAVERT [Concomitant]
  3. ALLOPURINOL [Concomitant]
  4. CYMBALTA [Concomitant]
  5. GLIPIZIDE [Concomitant]
  6. HYDROCODONE [Concomitant]
  7. IRON [Concomitant]
  8. ASA [Concomitant]
  9. BENADRYL [Concomitant]
  10. JANUVIA [Concomitant]
  11. LISINOPRIL [Concomitant]
  12. MULTIVITAMIN [Concomitant]
  13. NAPROXEN [Concomitant]
  14. NASONEX [Concomitant]
  15. OMEGA 3 FATTY ACID [Concomitant]
  16. SIMVASTATIN [Concomitant]
  17. ULTRAM [Concomitant]
  18. SPRYCEL [Concomitant]
  19. VITAMIN D [Concomitant]

REACTIONS (1)
  - Headache [Recovered/Resolved]
